FAERS Safety Report 14327153 (Version 1)
Quarter: 2017Q4

REPORT INFORMATION
  Report Type: Spontaneous
  Country: US (occurrence: US)
  Receive Date: 20171226
  Receipt Date: 20171226
  Transmission Date: 20180321
  Serious: Yes (Hospitalization)
  Sender: FDA-Public Use
  Company Number: None

PATIENT
  Age: 64 Year
  Sex: Male

DRUGS (1)
  1. ZYTIGA [Suspect]
     Active Substance: ABIRATERONE ACETATE

REACTIONS (4)
  - Tumour compression [None]
  - Spinal cord compression [None]
  - Neoplasm progression [None]
  - Drug dose omission [None]

NARRATIVE: CASE EVENT DATE: 20171226
